FAERS Safety Report 18462354 (Version 1)
Quarter: 2020Q4

REPORT INFORMATION
  Report Type: Spontaneous
  Country: US (occurrence: US)
  Receive Date: 20201103
  Receipt Date: 20201103
  Transmission Date: 20210114
  Serious: No
  Sender: FDA-Public Use
  Company Number: None

PATIENT
  Age: 72 Year
  Sex: Female

DRUGS (1)
  1. STIVARGA [Suspect]
     Active Substance: REGORAFENIB
     Indication: GASTROINTESTINAL NEOPLASM
     Route: 048
     Dates: start: 20191015

REACTIONS (3)
  - Drug ineffective [None]
  - Pain in extremity [None]
  - Disease progression [None]

NARRATIVE: CASE EVENT DATE: 202003
